FAERS Safety Report 5171368-6 (Version None)
Quarter: 2006Q4

REPORT INFORMATION
  Report Type: 
  Country: None (occurrence: None)
  Receive Date: 20061213
  Receipt Date: 20060928
  Transmission Date: 20070319
  Serious: Yes (Hospitalization)
  Sender: FDA-Public Use
  Company Number: US-AMGEN-US195208

PATIENT
  Sex: Female

DRUGS (9)
  1. ENBREL [Suspect]
     Indication: PSORIASIS
     Route: 058
     Dates: start: 20060817, end: 20060922
  2. CLOBETASOL PROPIONATE [Concomitant]
  3. NEXIUM [Concomitant]
  4. ESTRADIOL INJ [Concomitant]
  5. BYETTA [Concomitant]
  6. MEVACOR [Concomitant]
  7. VICODIN [Concomitant]
  8. AMBIEN [Concomitant]
  9. PROMETRIUM [Concomitant]

REACTIONS (4)
  - ARTHRITIS BACTERIAL [None]
  - DEVICE RELATED INFECTION [None]
  - ESCHERICHIA INFECTION [None]
  - URINARY TRACT INFECTION [None]
